FAERS Safety Report 6644396-9 (Version None)
Quarter: 2010Q1

REPORT INFORMATION
  Report Type: 
  Country: None (occurrence: None)
  Receive Date: 20100322
  Receipt Date: 20100311
  Transmission Date: 20100710
  Serious: Yes (Hospitalization)
  Sender: FDA-Public Use
  Company Number: FR-ROCHE-688490

PATIENT
  Sex: Female

DRUGS (2)
  1. ACTEMRA [Suspect]
     Indication: RHEUMATOID ARTHRITIS
     Dosage: FORM; INFUSION
     Route: 042
     Dates: start: 20091201
  2. NOVATREX [Concomitant]
     Route: 048

REACTIONS (1)
  - PERIPHLEBITIS [None]
